FAERS Safety Report 8103704-2 (Version None)
Quarter: 2012Q1

REPORT INFORMATION
  Report Type: 
  Country: None (occurrence: None)
  Receive Date: 20120201
  Receipt Date: 20120127
  Transmission Date: 20120608
  Serious: Yes (Death, Hospitalization, Other)
  Sender: FDA-Public Use
  Company Number: BR-PFIZER INC-2011265924

PATIENT
  Age: 72 Year
  Sex: Female
  Weight: 58 kg

DRUGS (13)
  1. VARENICLINE TARTRATE [Suspect]
     Dosage: 0.5 MG, EVERY 12 HOURS
     Route: 048
     Dates: start: 20111001, end: 20111001
  2. QUETIAPINE FUMARATE [Concomitant]
     Indication: SLEEP DISORDER
     Dosage: 2MG, UNSPECIFIED FREQUENCY
     Dates: start: 20110101
  3. AMBROXOL [Concomitant]
     Indication: LUNG NEOPLASM MALIGNANT
     Dosage: INHALATION, ONCE DAILY
     Dates: start: 20110901
  4. ENALAPRIL [Concomitant]
     Indication: BLOOD PRESSURE
  5. PAROXETINE [Concomitant]
     Indication: DEPRESSION
     Dosage: 20 MG, 1X/DAY
     Dates: start: 20100101
  6. ZETSIM [Concomitant]
     Indication: BLOOD CHOLESTEROL INCREASED
     Dosage: UNK
     Dates: start: 19990101
  7. ZETSIM [Concomitant]
     Indication: BLOOD CHOLESTEROL
  8. VARENICLINE TARTRATE [Suspect]
     Indication: SMOKING CESSATION THERAPY
     Dosage: UNK
     Route: 048
     Dates: start: 20111025, end: 20111001
  9. ENALAPRIL [Concomitant]
     Indication: HYPERTENSION
     Dosage: 10 MG, 1X/DAY
  10. ALENIA [Concomitant]
     Indication: LUNG NEOPLASM MALIGNANT
     Dosage: INHALATIONS TWICE DAILY
     Dates: start: 20110901
  11. CLONAZEPAM [Concomitant]
     Indication: SEDATIVE THERAPY
  12. VARENICLINE TARTRATE [Suspect]
     Dosage: 1 MG, 2X/DAY
     Route: 048
     Dates: start: 20111001, end: 20111201
  13. CLONAZEPAM [Concomitant]
     Indication: DEPRESSION
     Dosage: 2 MG, 1X/DAY
     Dates: start: 20080101

REACTIONS (4)
  - PNEUMONIA [None]
  - SLEEP DISORDER [None]
  - GENERAL PHYSICAL HEALTH DETERIORATION [None]
  - INSOMNIA [None]
